FAERS Safety Report 10359434 (Version 1)
Quarter: 2014Q3

REPORT INFORMATION
  Report Type: Spontaneous
  Country: US (occurrence: None)
  Receive Date: 20140801
  Receipt Date: 20140801
  Transmission Date: 20150326
  Serious: Yes (Disabling)
  Sender: FDA-Public Use
  Company Number: None

PATIENT
  Age: 32 Year

DRUGS (1)
  1. CYMBALTA [Suspect]
     Active Substance: DULOXETINE HYDROCHLORIDE
     Indication: PAIN
     Dosage: 1 PILL PER DAY ONCE DAILY TAKEN BY MOUTH
     Route: 048

REACTIONS (10)
  - Feeling abnormal [None]
  - Drug withdrawal syndrome [None]
  - Vertigo [None]
  - Loss of consciousness [None]
  - Nausea [None]
  - Mood swings [None]
  - Diarrhoea [None]
  - Paraesthesia [None]
  - Insomnia [None]
  - Impaired driving ability [None]

NARRATIVE: CASE EVENT DATE: 20140731
